FAERS Safety Report 6259869-0 (Version None)
Quarter: 2009Q3

REPORT INFORMATION
  Report Type: 
  Country: None (occurrence: None)
  Receive Date: 20090708
  Receipt Date: 20090630
  Transmission Date: 20100115
  Serious: Yes (Other)
  Sender: FDA-Public Use
  Company Number: TR-ROCHE-641710

PATIENT
  Age: 49 Year
  Sex: Male

DRUGS (7)
  1. VALGANCICLOVIR HCL [Suspect]
     Dosage: OVERDOSE, STARTED ON DAY 3 POSTTRANSPLANTATION, DISCONTINUED ON DAY 19 POSTTRANSPLANTATION
     Route: 048
  2. MYCOPHENOLATE MOFETIL [Suspect]
     Dosage: STARTED ON DAY 1 POSTTRANSPLANTATION, DISCONTINUED ON DAY 14
     Route: 065
  3. MYCOPHENOLATE SODIUM [Suspect]
     Dosage: DRUG REPORTED AS MYCOPHENOLIC ACID SODIUM, DISCONTINUED ON DAY 19 POSTTRANSPLANTATION
     Route: 065
  4. BASILIXIMAB [Suspect]
     Dosage: STARTED ON TRANSPLANTATION DAY
     Route: 065
  5. METHYLPREDNISOLONE [Suspect]
     Route: 065
  6. METHYLPREDNISOLONE [Suspect]
     Dosage: RAPIDLY TEPERED TO ONE-THIRD OF INITIAL DOSE (1000 MG) IN 10 DAYS
     Route: 065
  7. ANTITHYMOCYTE GLOBULIN [Suspect]
     Dosage: STARTED ON DAY 3 POSTTRANSPLANTATION, STOPPED ON DAY 7 POSTTRANSPLANTATION
     Route: 065

REACTIONS (4)
  - BONE MARROW FAILURE [None]
  - DIARRHOEA [None]
  - LYMPHADENOPATHY [None]
  - OVERDOSE [None]
